FAERS Safety Report 15299475 (Version 6)
Quarter: 2018Q4

REPORT INFORMATION
  Report Type: Spontaneous
  Country: IE (occurrence: IE)
  Receive Date: 20180821
  Receipt Date: 20181229
  Transmission Date: 20190204
  Serious: Yes (Other)
  Sender: FDA-Public Use
  Company Number: IE-TEVA-2018-IE-945466

PATIENT
  Age: 48 Year
  Sex: Male

DRUGS (6)
  1. XANAX [Suspect]
     Active Substance: ALPRAZOLAM
     Route: 065
  2. DALMANE [Suspect]
     Active Substance: FLURAZEPAM HYDROCHLORIDE
     Indication: INSOMNIA
     Route: 065
  3. DIFLUCAN 150 MG CAPSULES [Concomitant]
     Indication: FUNGAL INFECTION
     Route: 048
     Dates: start: 20180611, end: 20180706
  4. HALCION [Suspect]
     Active Substance: TRIAZOLAM
     Indication: INSOMNIA
     Dosage: 0.25MG-0.5MG DAILY
     Route: 048
     Dates: start: 20180706, end: 20180709
  5. NORTEM [Suspect]
     Active Substance: TEMAZEPAM
     Route: 065
  6. SPORANOX [Concomitant]
     Active Substance: ITRACONAZOLE
     Indication: FUNGAL INFECTION
     Route: 048
     Dates: start: 20180618, end: 20180706

REACTIONS (22)
  - Eyelid disorder [Not Recovered/Not Resolved]
  - Disturbance in attention [Not Recovered/Not Resolved]
  - Vision blurred [Not Recovered/Not Resolved]
  - Drug ineffective [Unknown]
  - Neuropathy peripheral [Not Recovered/Not Resolved]
  - Malaise [Not Recovered/Not Resolved]
  - Eye disorder [Not Recovered/Not Resolved]
  - Product lot number issue [Unknown]
  - Osteoporosis [Not Recovered/Not Resolved]
  - Diplopia [Not Recovered/Not Resolved]
  - Paronychia [Not Recovered/Not Resolved]
  - Oral candidiasis [Unknown]
  - Skin odour abnormal [Unknown]
  - Decreased appetite [Not Recovered/Not Resolved]
  - Rash [Not Recovered/Not Resolved]
  - Thirst [Not Recovered/Not Resolved]
  - Suspected product tampering [Unknown]
  - Dry eye [Not Recovered/Not Resolved]
  - Therapeutic response unexpected [Unknown]
  - Dysgeusia [Unknown]
  - Increased appetite [Not Recovered/Not Resolved]
  - Diarrhoea [Unknown]

NARRATIVE: CASE EVENT DATE: 20180709
